FAERS Safety Report 21747484 (Version 1)
Quarter: 2022Q4

REPORT INFORMATION
  Report Type: Spontaneous
  Country: US (occurrence: US)
  Receive Date: 20221219
  Receipt Date: 20221219
  Transmission Date: 20230113
  Serious: Yes (Hospitalization, Other)
  Sender: FDA-Public Use
  Company Number: US-BIOVITRUM-2022US14999

PATIENT
  Sex: Male

DRUGS (1)
  1. SYNAGIS [Suspect]
     Active Substance: PALIVIZUMAB
     Indication: Product used for unknown indication
     Dates: start: 202209

REACTIONS (4)
  - Pneumonia [Unknown]
  - Atelectasis [Unknown]
  - Oxygen saturation decreased [Unknown]
  - Heart rate increased [Unknown]
